FAERS Safety Report 13430789 (Version 1)
Quarter: 2017Q2

REPORT INFORMATION
  Report Type: Spontaneous
  Country: FR (occurrence: FR)
  Receive Date: 20170412
  Receipt Date: 20170412
  Transmission Date: 20170830
  Serious: Yes (Hospitalization, Other)
  Sender: FDA-Public Use
  Company Number: FR-BRISTOL-MYERS SQUIBB COMPANY-BMS-2017-028666

PATIENT
  Age: 85 Year
  Sex: Female
  Weight: 47.8 kg

DRUGS (10)
  1. LASILIX                            /00032601/ [Concomitant]
     Active Substance: FUROSEMIDE
     Indication: PRODUCT USED FOR UNKNOWN INDICATION
     Dosage: 40 MG, 2 TABLETS AT MIDDAY
     Route: 065
  2. COUMADINE [Suspect]
     Active Substance: WARFARIN SODIUM
     Indication: PRODUCT USED FOR UNKNOWN INDICATION
     Dosage: 3 MG, QD
     Route: 048
     Dates: end: 20170303
  3. LASILIX SPECIAL                    /00032601/ [Concomitant]
     Active Substance: FUROSEMIDE
     Indication: PRODUCT USED FOR UNKNOWN INDICATION
     Dosage: 250 MG, UNK
     Route: 065
  4. DAFLON                             /00426001/ [Concomitant]
     Active Substance: DIOSMIN
     Indication: PRODUCT USED FOR UNKNOWN INDICATION
     Dosage: 2 TAB, QD
     Route: 065
  5. DAFALGAN [Concomitant]
     Active Substance: ACETAMINOPHEN
     Indication: PRODUCT USED FOR UNKNOWN INDICATION
     Dosage: UNK, PRN
     Route: 065
  6. DIFFU K [Concomitant]
     Active Substance: POTASSIUM CHLORIDE
     Indication: PRODUCT USED FOR UNKNOWN INDICATION
     Dosage: 600 MG, QD
     Route: 065
  7. COUMADINE [Suspect]
     Active Substance: WARFARIN SODIUM
     Indication: EMBOLISM
     Dosage: 5 MG, QD
     Route: 048
     Dates: end: 20170303
  8. DUPHALAC [Concomitant]
     Active Substance: LACTULOSE
     Indication: PRODUCT USED FOR UNKNOWN INDICATION
     Route: 065
  9. DEXERYL                            /00557601/ [Concomitant]
     Active Substance: GLYCERIN\PARAFFIN
     Indication: PRODUCT USED FOR UNKNOWN INDICATION
     Route: 065
  10. PROCTOLOG                          /01026901/ [Concomitant]
     Indication: PRODUCT USED FOR UNKNOWN INDICATION
     Route: 065

REACTIONS (3)
  - Epistaxis [Recovered/Resolved]
  - Head injury [Unknown]
  - Fall [Unknown]

NARRATIVE: CASE EVENT DATE: 20170227
